FAERS Safety Report 17691572 (Version 9)
Quarter: 2022Q2

REPORT INFORMATION
  Report Type: Other
  Country: US (occurrence: None)
  Receive Date: 20200422
  Receipt Date: 20220412
  Transmission Date: 20220721
  Serious: Yes (Life-Threatening, Hospitalization, Other)
  Sender: FDA-Public Use
  Company Number: US-ROCHE-2586158

PATIENT
  Sex: Female
  Weight: 58.112 kg

DRUGS (26)
  1. OCREVUS [Suspect]
     Active Substance: OCRELIZUMAB
     Indication: Relapsing-remitting multiple sclerosis
     Dosage: PRESCRIBED WITH INFUSE 300 MG ON DAY 1, REPEAT DAY 15, 30MG/ML INJECTION?DATE OF TREATMENT: 01/MAY/2
     Route: 042
     Dates: start: 20180415
  2. OCREVUS [Suspect]
     Active Substance: OCRELIZUMAB
     Route: 042
     Dates: start: 2017
  3. OCREVUS [Suspect]
     Active Substance: OCRELIZUMAB
     Dosage: 30MG/ML INJECTION
     Route: 042
  4. EFFEXOR [Concomitant]
     Active Substance: VENLAFAXINE HYDROCHLORIDE
     Indication: Depression
     Dosage: NEXT DOSE RECEIVED ON /MAR/2020
     Route: 048
     Dates: start: 2019
  5. NEURONTIN [Concomitant]
     Active Substance: GABAPENTIN
     Indication: Neuralgia
     Route: 048
     Dates: start: 2009
  6. REMERON [Concomitant]
     Active Substance: MIRTAZAPINE
     Indication: Depression
     Route: 048
     Dates: start: 2020
  7. PROVIGIL [Concomitant]
     Active Substance: MODAFINIL
     Indication: Fatigue
     Route: 048
     Dates: start: 2009
  8. ZINC [Concomitant]
     Active Substance: ZINC
     Route: 048
  9. VITAMIN C [Concomitant]
     Active Substance: ASCORBIC ACID
     Route: 048
  10. VITAMIN B12 [Concomitant]
     Active Substance: CYANOCOBALAMIN
     Route: 048
  11. B COMPLEX WITH FOLIC ACID [Concomitant]
     Route: 048
  12. BIOTIN [Concomitant]
     Active Substance: BIOTIN
     Route: 048
  13. LEXAPRO [Concomitant]
     Active Substance: ESCITALOPRAM OXALATE
     Indication: Depression
  14. LEXAPRO [Concomitant]
     Active Substance: ESCITALOPRAM OXALATE
     Indication: Anxiety
  15. GABAPENTIN [Concomitant]
     Active Substance: GABAPENTIN
     Indication: Neuralgia
  16. AMANTADINE [Concomitant]
     Active Substance: AMANTADINE
     Indication: Depression
  17. AMANTADINE [Concomitant]
     Active Substance: AMANTADINE
     Indication: Fatigue
  18. VITAMIN B COMPLEX [Concomitant]
     Active Substance: CYANOCOBALAMIN\DEXPANTHENOL\NIACINAMIDE\PYRIDOXINE HYDROCHLORIDE\RIBOFLAVIN 5^-PHOSPHATE SODIUM\THIA
  19. OXYGEN [Concomitant]
     Active Substance: OXYGEN
  20. METHYLPREDNISOLONE [Concomitant]
     Active Substance: METHYLPREDNISOLONE
  21. ALBUTEROL [Concomitant]
     Active Substance: ALBUTEROL
  22. NEURONTIN [Concomitant]
     Active Substance: GABAPENTIN
  23. VALTREX [Concomitant]
     Active Substance: VALACYCLOVIR HYDROCHLORIDE
  24. ZOFRAN [Concomitant]
     Active Substance: ONDANSETRON HYDROCHLORIDE
  25. BENADRYL [Concomitant]
     Active Substance: DIPHENHYDRAMINE HYDROCHLORIDE
  26. BIOTIN [Concomitant]
     Active Substance: BIOTIN

REACTIONS (30)
  - Migraine [Recovered/Resolved]
  - Cellulitis [Recovered/Resolved]
  - Fatigue [Not Recovered/Not Resolved]
  - Thrombosis [Not Recovered/Not Resolved]
  - Multiple sclerosis relapse [Recovering/Resolving]
  - Drug hypersensitivity [Unknown]
  - Dysphagia [Not Recovered/Not Resolved]
  - Pruritus [Not Recovered/Not Resolved]
  - Vitamin D decreased [Not Recovered/Not Resolved]
  - Oesophageal rupture [Unknown]
  - COVID-19 [Recovered/Resolved]
  - Disorientation [Unknown]
  - Bronchitis [Recovering/Resolving]
  - Abnormal weight gain [Unknown]
  - Conjunctivitis [Recovered/Resolved]
  - Nausea [Unknown]
  - Tendon disorder [Unknown]
  - Vomiting [Unknown]
  - Feeling hot [Unknown]
  - Blindness [Unknown]
  - Hallucination [Unknown]
  - Cough [Not Recovered/Not Resolved]
  - COVID-19 [Recovered/Resolved]
  - Adrenal insufficiency [Recovering/Resolving]
  - Blood pressure decreased [Recovered/Resolved]
  - Heart rate abnormal [Not Recovered/Not Resolved]
  - Oxygen saturation decreased [Not Recovered/Not Resolved]
  - Somnolence [Recovered/Resolved]
  - Urinary incontinence [Not Recovered/Not Resolved]
  - Amnesia [Not Recovered/Not Resolved]

NARRATIVE: CASE EVENT DATE: 20180101
